FAERS Safety Report 4548894-3 (Version None)
Quarter: 2004Q4

REPORT INFORMATION
  Report Type: 
  Country: None (occurrence: None)
  Receive Date: 20041227
  Receipt Date: 20041119
  Transmission Date: 20050328
  Serious: No
  Sender: FDA-Public Use
  Company Number: 04P-163-0281249-00

PATIENT
  Age: 81 Year
  Sex: Female
  Weight: 63.5036 kg

DRUGS (9)
  1. HUMIRA [Suspect]
     Indication: RHEUMATOID ARTHRITIS
     Dosage: 40 MG, 1 IN 2 WK, SUBCUTANEOUS
     Route: 058
     Dates: start: 20020101
  2. UNSPECIFIED PAIN PATCH [Concomitant]
  3. LEVOTHYROXINE SODIUM [Concomitant]
  4. PANTOPRAZOLE [Concomitant]
  5. BENAZEPRIL HCL [Concomitant]
  6. FOLIC ACID [Concomitant]
  7. ASPIRIN [Concomitant]
  8. FAMOTIDINE [Concomitant]
  9. ALPRAZOLAM [Concomitant]

REACTIONS (8)
  - ARTHRALGIA [None]
  - BACK PAIN [None]
  - CONDITION AGGRAVATED [None]
  - DECREASED APPETITE [None]
  - DYSPEPSIA [None]
  - FALL [None]
  - POLLAKIURIA [None]
  - TREMOR [None]
